FAERS Safety Report 7582981-0 (Version None)
Quarter: 2011Q2

REPORT INFORMATION
  Report Type: 
  Country: None (occurrence: None)
  Receive Date: 20110627
  Receipt Date: 20110627
  Transmission Date: 20111010
  Serious: Yes (Hospitalization)
  Sender: FDA-Public Use
  Company Number: None

PATIENT
  Age: 48 Year
  Sex: Female
  Weight: 100.6985 kg

DRUGS (2)
  1. RESTASIS [Concomitant]
  2. LAMICTAL [Suspect]
     Indication: DEPRESSION
     Dosage: 12.5 MG. TAPER UP TO 75 MG BID PO
     Route: 048
     Dates: start: 20110303, end: 20110319

REACTIONS (1)
  - STEVENS-JOHNSON SYNDROME [None]
